FAERS Safety Report 21758422 (Version 2)
Quarter: 2023Q1

REPORT INFORMATION
  Report Type: Spontaneous
  Country: US (occurrence: US)
  Receive Date: 20221221
  Receipt Date: 20230113
  Transmission Date: 20230418
  Serious: Yes (Hospitalization)
  Sender: FDA-Public Use
  Company Number: US-PHARMING-PHAUS2022000860

PATIENT

DRUGS (1)
  1. RUCONEST [Suspect]
     Active Substance: HUMAN C1-ESTERASE INHIBITOR
     Indication: Hereditary angioedema
     Dosage: 2100 IU, AS NEEDED
     Route: 042
     Dates: start: 20190917

REACTIONS (3)
  - Viral infection [Unknown]
  - Weight increased [Unknown]
  - Underdose [Unknown]
